FAERS Safety Report 9517258 (Version 1)
Quarter: 2013Q1

REPORT INFORMATION
  Report Type: Spontaneous
  Country: US (occurrence: None)
  Receive Date: 20130305
  Receipt Date: 20130305
  Transmission Date: 20140127
  Serious: No
  Sender: FDA-Public Use
  Company Number: 163-21880-12031315

PATIENT
  Sex: 0

DRUGS (3)
  1. REVLIMID (LENALIDOMIDE) [Suspect]
  2. VELCADE [Concomitant]
  3. ASPIRIN [Concomitant]

REACTIONS (6)
  - Fatigue [None]
  - Lower extremity mass [None]
  - Hot flush [None]
  - Rash maculo-papular [None]
  - Increased tendency to bruise [None]
  - Neuropathy peripheral [None]
